FAERS Safety Report 10632611 (Version 1)
Quarter: 2014Q4

REPORT INFORMATION
  Report Type: Spontaneous
  Country: US (occurrence: US)
  Receive Date: 20141205
  Receipt Date: 20141205
  Transmission Date: 20150529
  Serious: No
  Sender: FDA-Public Use
  Company Number: US-BRISTOL-MYERS SQUIBB COMPANY-21570478

PATIENT
  Age: 80 Year
  Sex: Female

DRUGS (4)
  1. MULTAQ [Concomitant]
     Active Substance: DRONEDARONE
  2. XARELTO [Concomitant]
     Active Substance: RIVAROXABAN
  3. PRADAXA [Concomitant]
     Active Substance: DABIGATRAN ETEXILATE MESYLATE
  4. ELIQUIS [Suspect]
     Active Substance: APIXABAN

REACTIONS (2)
  - Eosinophilia [Unknown]
  - Hypersensitivity [Unknown]

NARRATIVE: CASE EVENT DATE: 201311
